FAERS Safety Report 8881157 (Version 2)
Quarter: 2012Q4

REPORT INFORMATION
  Report Type: 
  Country: US (occurrence: US)
  Receive Date: 20121031
  Receipt Date: 20121217
  Transmission Date: 20130627
  Serious: Yes (Other)
  Sender: FDA-Public Use
  Company Number: US-TEVA-367200USA

PATIENT
  Sex: Male

DRUGS (2)
  1. AMLODIPINE [Suspect]
  2. UNSPECIFIED MEDICATIONS [Suspect]
     Indication: HEPATITIS C

REACTIONS (2)
  - Hepatitis C [Unknown]
  - Hypotension [Unknown]
